FAERS Safety Report 7233030-5 (Version None)
Quarter: 2011Q1

REPORT INFORMATION
  Report Type: 
  Country: None (occurrence: None)
  Receive Date: 20110119
  Receipt Date: 20110110
  Transmission Date: 20110831
  Serious: Yes (Other)
  Sender: FDA-Public Use
  Company Number: FR-BAXTER-2011BH001049

PATIENT
  Sex: Female
  Weight: 2 kg

DRUGS (15)
  1. EPIRUBICIN HYDROCHLORIDE [Suspect]
     Route: 064
     Dates: start: 20100804, end: 20100804
  2. FLUOROURACIL [Suspect]
     Route: 064
     Dates: start: 20100824, end: 20100824
  3. FLUOROURACIL [Suspect]
     Route: 064
     Dates: start: 20100713, end: 20100713
  4. PACLITAXEL [Suspect]
     Route: 064
     Dates: start: 20101019, end: 20101019
  5. PACLITAXEL [Suspect]
     Route: 064
     Dates: start: 20101012, end: 20101012
  6. EPIRUBICIN HYDROCHLORIDE [Suspect]
     Indication: DRUG EXPOSURE DURING PREGNANCY
     Route: 064
     Dates: start: 20100914, end: 20100914
  7. EPIRUBICIN HYDROCHLORIDE [Suspect]
     Route: 064
     Dates: start: 20100824, end: 20100824
  8. EPIRUBICIN HYDROCHLORIDE [Suspect]
     Route: 064
     Dates: start: 20100713, end: 20100713
  9. FLUOROURACIL [Suspect]
     Indication: DRUG EXPOSURE DURING PREGNANCY
     Route: 064
     Dates: start: 20100914, end: 20100914
  10. CYCLOPHOSPHAMIDE [Suspect]
     Route: 064
     Dates: start: 20100824, end: 20100824
  11. CYCLOPHOSPHAMIDE [Suspect]
     Route: 064
     Dates: start: 20100804, end: 20100804
  12. CYCLOPHOSPHAMIDE [Suspect]
     Route: 064
     Dates: start: 20100713, end: 20100713
  13. PACLITAXEL [Suspect]
     Indication: PRODUCT USED FOR UNKNOWN INDICATION
     Route: 064
     Dates: start: 20101026, end: 20101026
  14. FLUOROURACIL [Suspect]
     Route: 064
     Dates: start: 20100804, end: 20100804
  15. CYCLOPHOSPHAMIDE [Suspect]
     Indication: DRUG EXPOSURE DURING PREGNANCY
     Route: 064
     Dates: start: 20100914, end: 20100914

REACTIONS (4)
  - DRUG EXPOSURE DURING PREGNANCY [None]
  - FOETAL GROWTH RESTRICTION [None]
  - HYPOGLYCAEMIA NEONATAL [None]
  - FOETAL MALNUTRITION [None]
